FAERS Safety Report 19268788 (Version 2)
Quarter: 2023Q4

REPORT INFORMATION
  Report Type: Report from Study
  Country: CA (occurrence: CA)
  Receive Date: 20210517
  Receipt Date: 20231030
  Transmission Date: 20240110
  Serious: Yes (Hospitalization, Other)
  Sender: FDA-Public Use
  Company Number: CA-PFIZER INC-2021494257

PATIENT
  Sex: Male

DRUGS (5)
  1. RITUXIMAB [Suspect]
     Active Substance: RITUXIMAB
     Indication: Immunoglobulin G4 related disease
     Dosage: 1000 MG
     Route: 042
  2. RITUXIMAB [Suspect]
     Active Substance: RITUXIMAB
     Indication: Immunoglobulin G4 related disease
     Dosage: 500 MG, 1 EVERY 6 MONTHS
     Route: 042
  3. CALCIUM [Concomitant]
     Active Substance: CALCIUM
  4. LIPITOR [Concomitant]
     Active Substance: ATORVASTATIN CALCIUM
     Route: 065
  5. PREDNISONE [Concomitant]
     Active Substance: PREDNISONE

REACTIONS (3)
  - Dyspnoea [Recovered/Resolved]
  - Pulmonary fibrosis [Recovered/Resolved]
  - COVID-19 [Recovered/Resolved]
